FAERS Safety Report 4557828-7 (Version None)
Quarter: 2005Q1

REPORT INFORMATION
  Report Type: 
  Country: None (occurrence: None)
  Receive Date: 20050118
  Receipt Date: 20041230
  Transmission Date: 20050727
  Serious: Yes (Hospitalization)
  Sender: FDA-Public Use
  Company Number: 105760ISR

PATIENT
  Age: 26 Year
  Sex: Female

DRUGS (5)
  1. METHOTREXATE [Suspect]
     Indication: LYMPHOMA
     Dosage: INTRAVENOUS (NOS)
     Route: 042
     Dates: start: 20030317, end: 20030707
  2. DOXORUBICIN HCL [Suspect]
     Indication: LYMPHOMA
     Dosage: INTRAVENOUS (NOS)
     Route: 042
     Dates: start: 20021229, end: 20030213
  3. CYCLOPHOSPHAMIDE [Suspect]
     Indication: LYMPHOMA
     Dosage: INTRAVENOUS (NOS)
     Route: 042
     Dates: start: 20021229, end: 20030213
  4. ETOPOSIDE [Suspect]
     Indication: LYMPHOMA
     Dosage: INTRAVENOUS (NOS)
     Route: 042
     Dates: start: 20030113, end: 20030604
  5. MABTHERA (RITUXIMAB) [Suspect]
     Indication: LYMPHOMA
     Dosage: INTRAVENOUS (NOS)
     Route: 042
     Dates: start: 20030213, end: 20030213

REACTIONS (4)
  - ACUTE MYELOID LEUKAEMIA [None]
  - HAEMATOTOXICITY [None]
  - PANCYTOPENIA [None]
  - SKIN TOXICITY [None]
